FAERS Safety Report 8913647 (Version 1)
Quarter: 2012Q4

REPORT INFORMATION
  Report Type: Spontaneous
  Country: DK (occurrence: None)
  Receive Date: 20121113
  Receipt Date: 20121113
  Transmission Date: 20130627
  Serious: Yes (Hospitalization)
  Sender: FDA-Public Use
  Company Number: 2012MA013183

PATIENT
  Age: 31 Year
  Sex: Female

DRUGS (2)
  1. FEVERALL [Suspect]
     Indication: ATTENTION-SEEKING BEHAVIOR
     Dates: start: 20120626, end: 20120626
  2. FEVERALL [Suspect]
     Indication: OVERDOSE
     Dates: start: 20120626, end: 20120626

REACTIONS (4)
  - Intentional drug misuse [None]
  - Drug abuse [None]
  - Overdose [None]
  - No adverse event [None]
